FAERS Safety Report 8973248 (Version 1)
Quarter: 2012Q4

REPORT INFORMATION
  Report Type: 
  Country: GB (occurrence: GB)
  Receive Date: 20121218
  Receipt Date: 20121218
  Transmission Date: 20130627
  Serious: Yes (Other)
  Sender: FDA-Public Use
  Company Number: GB-UCBSA-073164

PATIENT
  Age: 52 Year
  Sex: Female
  Weight: 95 kg

DRUGS (10)
  1. KEPPRA [Suspect]
     Indication: CONVULSION
     Dosage: DOSAGE: 1 TOATAL
     Route: 042
     Dates: start: 20121125, end: 20121125
  2. KEPPRA [Suspect]
     Indication: CONVULSION
     Route: 042
     Dates: start: 201211, end: 20121128
  3. SODIUM VALPROATE [Concomitant]
  4. DOCUSATE [Concomitant]
  5. ENOXAPARIN SODIUM [Concomitant]
  6. ESOMEPRAZOLE [Concomitant]
  7. LEVOTHYROXINE SODIUM [Concomitant]
  8. MEROPENEM [Concomitant]
  9. PHENYTOIN [Concomitant]
     Indication: PARTIAL SEIZURES
  10. SENNA [Concomitant]

REACTIONS (5)
  - Alanine aminotransferase increased [Recovering/Resolving]
  - Blood alkaline phosphatase abnormal [Recovering/Resolving]
  - Liver function test abnormal [Recovering/Resolving]
  - Hepatic function abnormal [Recovering/Resolving]
  - Hepatic function abnormal [Recovering/Resolving]
